FAERS Safety Report 10080990 (Version 2)
Quarter: 2014Q2

REPORT INFORMATION
  Report Type: Spontaneous
  Country: US (occurrence: None)
  Receive Date: 20140414
  Receipt Date: 20140508
  Transmission Date: 20141212
  Serious: Yes (Hospitalization)
  Sender: FDA-Public Use
  Company Number: UTC-046372

PATIENT
  Age: 67 Year
  Sex: Male
  Weight: 86.18 kg

DRUGS (4)
  1. TYVASO [Suspect]
     Indication: PULMONARY ARTERIAL HYPERTENSION
     Route: 055
     Dates: start: 20131224
  2. SILDENAFIL(SILDENAFIL) [Concomitant]
  3. TRACLEER(BOSENTAN) [Concomitant]
  4. REVATIO (SILDENAFIL CITRATE) (UNKNOWN) [Concomitant]

REACTIONS (5)
  - Cardiac failure [None]
  - Fluid retention [None]
  - Cardiac failure congestive [None]
  - Right ventricular failure [None]
  - Dyspnoea [None]
